FAERS Safety Report 21605522 (Version 1)
Quarter: 2022Q4

REPORT INFORMATION
  Report Type: Spontaneous
  Country: FR (occurrence: FR)
  Receive Date: 20221116
  Receipt Date: 20221116
  Transmission Date: 20230113
  Serious: Yes (Hospitalization, Other)
  Sender: FDA-Public Use
  Company Number: FR-SA-SAC20220811000322

PATIENT
  Age: 38 Year
  Sex: Male

DRUGS (7)
  1. TYSABRI [Suspect]
     Active Substance: NATALIZUMAB
     Indication: Product used for unknown indication
     Dosage: 6 WEEKS INFUSION IN DAY
     Route: 050
  2. DALFAMPRIDINE [Suspect]
     Active Substance: DALFAMPRIDINE
     Indication: Product used for unknown indication
     Dosage: MORNING AND EVENING.
     Route: 050
  3. CORTISONE [Suspect]
     Active Substance: CORTISONE
     Indication: Product used for unknown indication
     Route: 050
  4. THIOCOLCHICOSIDE [Suspect]
     Active Substance: THIOCOLCHICOSIDE
     Indication: Product used for unknown indication
     Dosage: 1 TABLET MORNING AND NOON, EVENING
  5. REVAXIS [Suspect]
     Active Substance: DIPHTHERIA AND TETANUS TOXOIDS AND POLIOVIRUS VACCINE ANTIGENS
     Indication: Immunisation
     Route: 050
     Dates: start: 20080225
  6. REVAXIS [Suspect]
     Active Substance: DIPHTHERIA AND TETANUS TOXOIDS AND POLIOVIRUS VACCINE ANTIGENS
     Dates: start: 20080321
  7. ACETAMINOPHEN [Concomitant]
     Active Substance: ACETAMINOPHEN
     Indication: Product used for unknown indication
     Dosage: 2 TABLETS IN CASE 2 TABLETS IN CASE OF TEMPERATURE 3 TIMES A DAY
     Route: 050

REACTIONS (43)
  - Cerebellar syndrome [Not Recovered/Not Resolved]
  - Dysmetria [Unknown]
  - Gait disturbance [Unknown]
  - Motor dysfunction [Unknown]
  - Gait disturbance [Not Recovered/Not Resolved]
  - Fall [Unknown]
  - Central nervous system inflammation [Not Recovered/Not Resolved]
  - Central nervous system inflammation [Unknown]
  - Balance disorder [Not Recovered/Not Resolved]
  - Dysuria [Not Recovered/Not Resolved]
  - Illness [Unknown]
  - Dysaesthesia [Unknown]
  - Cerebellar syndrome [Unknown]
  - Atrophy [Unknown]
  - Relapsing-remitting multiple sclerosis [Unknown]
  - Pain in extremity [Unknown]
  - Multiple sclerosis [Not Recovered/Not Resolved]
  - Asthenia [Recovered/Resolved]
  - Hypoaesthesia [Unknown]
  - Multiple sclerosis [Unknown]
  - Paraesthesia [Not Recovered/Not Resolved]
  - Injection site pain [Unknown]
  - Pain [Not Recovered/Not Resolved]
  - Limb discomfort [Not Recovered/Not Resolved]
  - Mobility decreased [Unknown]
  - Fatigue [Not Recovered/Not Resolved]
  - Fatigue [Unknown]
  - Pruritus [Unknown]
  - Arthralgia [Unknown]
  - Dizziness [Recovered/Resolved]
  - Vaccination site pain [Recovered/Resolved]
  - Hyporeflexia [Unknown]
  - Pain [Unknown]
  - Mobility decreased [Unknown]
  - JC polyomavirus test [Unknown]
  - Areflexia [Unknown]
  - Dysuria [Unknown]
  - Myalgia [Unknown]
  - Muscular weakness [Unknown]
  - Limb discomfort [Unknown]
  - Surgery [Unknown]
  - JC polyomavirus test positive [Recovered/Resolved]
  - Balance disorder [Unknown]

NARRATIVE: CASE EVENT DATE: 20080225
